FAERS Safety Report 5234120-9 (Version None)
Quarter: 2007Q1

REPORT INFORMATION
  Report Type: 
  Country: None (occurrence: None)
  Receive Date: 20070208
  Receipt Date: 20070130
  Transmission Date: 20070707
  Serious: Yes (Other)
  Sender: FDA-Public Use
  Company Number: FR-PFIZER INC-2007009243

PATIENT
  Age: 44 Year
  Sex: Female

DRUGS (4)
  1. LYRICA [Suspect]
     Dates: start: 20070105, end: 20070107
  2. VERAPAMIL [Concomitant]
  3. BROMAZEPAM [Concomitant]
  4. PRAVASTATIN [Concomitant]

REACTIONS (2)
  - FATIGUE [None]
  - HYPOTENSION [None]
